FAERS Safety Report 7561963-9 (Version None)
Quarter: 2011Q2

REPORT INFORMATION
  Report Type: 
  Country: None (occurrence: None)
  Receive Date: 20110621
  Receipt Date: 20110607
  Transmission Date: 20111010
  Serious: Yes (Other)
  Sender: FDA-Public Use
  Company Number: AR-AMGEN-ARGSP2011024302

PATIENT
  Age: 39 Year
  Sex: Male

DRUGS (10)
  1. METHOTREXATE [Concomitant]
     Dosage: 15 MG, WEEKLY
  2. METHOTREXATE [Concomitant]
     Dosage: LOW DOSE
  3. FOLIC ACID [Concomitant]
  4. CORTICOSTEROIDS [Concomitant]
  5. ENBREL [Suspect]
     Dosage: 50 MG, WEEKLY
     Dates: start: 20090901
  6. ENBREL [Suspect]
     Dosage: 50 MG, WEEKLY
     Dates: start: 20060901
  7. ENBREL [Suspect]
     Dosage: 25 MG, WEEKLY
     Dates: start: 20060901
  8. PREDNISONE TAB [Concomitant]
     Dosage: 10 MG, 1X/DAY
  9. ETORICOXIB [Concomitant]
  10. ARTIFICIAL TEARS [Concomitant]

REACTIONS (1)
  - FELTY'S SYNDROME [None]
